FAERS Safety Report 24995070 (Version 1)
Quarter: 2025Q1

REPORT INFORMATION
  Report Type: Spontaneous
  Country: US (occurrence: None)
  Receive Date: 20250220
  Receipt Date: 20250220
  Transmission Date: 20250408
  Serious: Yes (Other)
  Sender: FDA-CTU
  Company Number: None

PATIENT
  Age: 42 Year

DRUGS (10)
  1. MEDICAL FOOD [Suspect]
     Active Substance: MEDICAL FOOD
     Indication: Peripheral venous disease
     Dosage: FREQUENCY : DAILY;?
     Route: 048
     Dates: start: 202306
  2. PROPRANOLOL [Suspect]
     Active Substance: PROPRANOLOL HYDROCHLORIDE
  3. PROMETHAZINE [Concomitant]
     Active Substance: PROMETHAZINE HYDROCHLORIDE
  4. TORSEMIDE [Concomitant]
     Active Substance: TORSEMIDE
  5. PANTOPRAZOLE [Concomitant]
     Active Substance: PANTOPRAZOLE
  6. LORAZEPAM [Concomitant]
     Active Substance: LORAZEPAM
  7. CLOBETASOL [Concomitant]
     Active Substance: CLOBETASOL
  8. FLUCONAZOLE [Concomitant]
     Active Substance: FLUCONAZOLE
  9. HYDROXYZINE [Concomitant]
     Active Substance: HYDROXYZINE HYDROCHLORIDE
  10. ZYRTEC [Concomitant]
     Active Substance: CETIRIZINE HYDROCHLORIDE

REACTIONS (4)
  - Therapy interrupted [None]
  - Migraine [None]
  - Anaphylactic reaction [None]
  - Product formulation issue [None]

NARRATIVE: CASE EVENT DATE: 20250217
